FAERS Safety Report 20759935 (Version 2)
Quarter: 2022Q2

REPORT INFORMATION
  Report Type: Spontaneous
  Country: US (occurrence: US)
  Receive Date: 20220427
  Receipt Date: 20220517
  Transmission Date: 20220720
  Serious: No
  Sender: FDA-Public Use
  Company Number: US-BEH-2022144591

PATIENT
  Age: 55 Year
  Sex: Female

DRUGS (3)
  1. HIZENTRA [Suspect]
     Active Substance: HUMAN IMMUNOGLOBULIN G
     Indication: Immunodeficiency common variable
     Dosage: 10 GRAM, QW
     Route: 058
     Dates: start: 202202
  2. HIZENTRA [Suspect]
     Active Substance: HUMAN IMMUNOGLOBULIN G
     Dosage: UNK
     Route: 058
     Dates: start: 20220411
  3. AUGMENTIN [Suspect]
     Active Substance: AMOXICILLIN\CLAVULANATE POTASSIUM
     Indication: Infection
     Dosage: 1 DOSAGE FORM, TOT
     Route: 048
     Dates: start: 202204

REACTIONS (14)
  - Infection [Unknown]
  - Pyrexia [Unknown]
  - Pain [Unknown]
  - Paranasal sinus discomfort [Unknown]
  - Throat irritation [Unknown]
  - Nasal congestion [Unknown]
  - Nasal discharge discolouration [Unknown]
  - Ear discomfort [Unknown]
  - Ear pain [Unknown]
  - Diarrhoea [Unknown]
  - Abdominal pain upper [Unknown]
  - Blood potassium decreased [Unknown]
  - Vitreous floaters [Recovered/Resolved]
  - Diarrhoea [Recovered/Resolved]

NARRATIVE: CASE EVENT DATE: 20220401
